FAERS Safety Report 7816608-7 (Version None)
Quarter: 2011Q4

REPORT INFORMATION
  Report Type: 
  Country: None (occurrence: None)
  Receive Date: 20111017
  Receipt Date: 20111010
  Transmission Date: 20120403
  Serious: Yes (Other)
  Sender: FDA-Public Use
  Company Number: FR-PFIZER INC-2011240660

PATIENT
  Sex: Male

DRUGS (1)
  1. SOMATROPIN RDNA [Suspect]
     Indication: BODY HEIGHT ABNORMAL
     Dosage: UNK

REACTIONS (1)
  - GLAUCOMA [None]
